FAERS Safety Report 6591237-4 (Version None)
Quarter: 2010Q1

REPORT INFORMATION
  Report Type: 
  Country: None (occurrence: None)
  Receive Date: 20100219
  Receipt Date: 20100213
  Transmission Date: 20100710
  Serious: Yes (Hospitalization)
  Sender: FDA-Public Use
  Company Number: PHHO2010IT02517

PATIENT
  Sex: Male
  Weight: 76 kg

DRUGS (3)
  1. CERTICAN [Suspect]
     Indication: RENAL TRANSPLANT
     Dosage: 1 MG + 075 MG
     Route: 048
     Dates: start: 20080219
  2. NEORAL [Suspect]
     Indication: RENAL TRANSPLANT
     Dosage: 50 MG + 25 MG
     Route: 048
     Dates: start: 20100202
  3. STEROIDS NOS [Concomitant]

REACTIONS (3)
  - GLOMERULOSCLEROSIS [None]
  - PROTEINURIA [None]
  - RENAL IMPAIRMENT [None]
